FAERS Safety Report 9259432 (Version 1)
Quarter: 2013Q2

REPORT INFORMATION
  Report Type: Spontaneous
  Country: US (occurrence: US)
  Receive Date: 20130428
  Receipt Date: 20130428
  Transmission Date: 20140414
  Serious: Yes (Death, Other)
  Sender: FDA-Public Use
  Company Number: US-TEVA-400519USA

PATIENT
  Age: 39 Year
  Sex: Female

DRUGS (3)
  1. CARBOPLATIN [Suspect]
     Indication: OVARIAN CANCER
  2. DOXORUBICIN LIPOSOMAL [Suspect]
     Indication: OVARIAN CANCER RECURRENT
     Dates: start: 200609, end: 201001
  3. PACLITAXEL [Concomitant]
     Indication: OVARIAN CANCER

REACTIONS (4)
  - Renal failure chronic [Recovering/Resolving]
  - Thrombotic microangiopathy [Recovering/Resolving]
  - Ovarian cancer [Fatal]
  - Disease progression [Fatal]
